FAERS Safety Report 5858052-8 (Version None)
Quarter: 2008Q3

REPORT INFORMATION
  Report Type: 
  Country: None (occurrence: None)
  Receive Date: 20080826
  Receipt Date: 20080821
  Transmission Date: 20090109
  Serious: Yes (Hospitalization)
  Sender: FDA-Public Use
  Company Number: GB-MERCK-0808GBR00088

PATIENT
  Age: 70 Year
  Sex: Male

DRUGS (4)
  1. INVANZ [Suspect]
     Indication: ABDOMINAL SEPSIS
     Route: 041
     Dates: start: 20080725, end: 20080727
  2. BISOPROLOL [Concomitant]
     Indication: ATRIAL FIBRILLATION
     Route: 048
  3. DIGOXIN [Concomitant]
     Indication: ATRIAL FIBRILLATION
     Route: 048
  4. OMEPRAZOLE [Concomitant]
     Route: 048

REACTIONS (3)
  - BLISTER [None]
  - DERMATITIS BULLOUS [None]
  - OEDEMA PERIPHERAL [None]
